FAERS Safety Report 7992572-5 (Version None)
Quarter: 2011Q4

REPORT INFORMATION
  Report Type: 
  Country: None (occurrence: None)
  Receive Date: 20111219
  Receipt Date: 20111208
  Transmission Date: 20120403
  Serious: Yes (Hospitalization)
  Sender: FDA-Public Use
  Company Number: SE-NAPPMUNDI-GBR-2011-0009222

PATIENT
  Sex: Male

DRUGS (16)
  1. MORPHINE [Suspect]
     Indication: PAIN IN EXTREMITY
     Dosage: 10 MG, PRN
     Route: 048
     Dates: start: 20110128, end: 20111107
  2. MORPHINE SULFATE [Suspect]
     Indication: PAIN IN EXTREMITY
     Dosage: 30 MG, DAILY
     Route: 048
     Dates: start: 20110128, end: 20111107
  3. CANODERM [Concomitant]
     Dosage: UNK
     Route: 061
  4. CITALOPRAM [Concomitant]
     Dosage: UNK
  5. LACTULOSE [Concomitant]
     Dosage: UNK
     Route: 048
  6. COZAAR [Concomitant]
     Dosage: UNK
  7. NITROMEX [Concomitant]
     Dosage: UNK
     Route: 060
  8. XERODENT                           /01274201/ [Concomitant]
     Dosage: UNK
  9. AMILORIDE HYDROCHLORIDE [Concomitant]
     Dosage: UNK
  10. SIMVASTATIN [Concomitant]
     Dosage: UNK
  11. FUROSEMIDE [Concomitant]
     Dosage: UNK
  12. SUSCARD [Concomitant]
     Dosage: UNK
     Route: 002
  13. ALVEDON [Concomitant]
     Dosage: UNK
  14. ISMO [Concomitant]
     Dosage: UNK
  15. PROSCAR [Concomitant]
     Dosage: UNK
  16. PLAVIX [Concomitant]
     Dosage: UNK

REACTIONS (3)
  - NIGHTMARE [None]
  - WEIGHT DECREASED [None]
  - HALLUCINATION, VISUAL [None]
